FAERS Safety Report 7170140-5 (Version None)
Quarter: 2010Q4

REPORT INFORMATION
  Report Type: 
  Country: None (occurrence: None)
  Receive Date: 20101217
  Receipt Date: 20101207
  Transmission Date: 20110411
  Serious: Yes (Other)
  Sender: FDA-Public Use
  Company Number: US-NOVOPROD-312963

PATIENT
  Sex: Female
  Weight: 108.84 kg

DRUGS (15)
  1. NOVOLOG [Suspect]
     Indication: TYPE 2 DIABETES MELLITUS
     Dosage: 5 U AT BREAKFAST, 10 U AT LUNCH, 8 U AT DINNER
     Route: 058
     Dates: start: 20070101
  2. LANTUS [Suspect]
     Indication: TYPE 2 DIABETES MELLITUS
     Dosage: 35 U, QD AT BEDTIME
     Route: 058
  3. NORCO [Concomitant]
     Indication: PAIN
     Dosage: 7.5/325 MG Q4 HOURS PRN
  4. ATENOLOL [Concomitant]
     Indication: HYPERTENSION
     Dosage: 50 MG, EVERY MORNING
  5. DIOVAN [Concomitant]
     Indication: HYPERTENSION
     Dosage: 80 MG, BID
  6. PLAVIX [Concomitant]
     Indication: ANTICOAGULANT THERAPY
     Dosage: 75 MG, QD
  7. MULTIVITAMIN                       /00097801/ [Concomitant]
     Indication: VITAMIN SUPPLEMENTATION
     Dosage: UNK
  8. METFORMIN [Concomitant]
     Indication: TYPE 2 DIABETES MELLITUS
     Dosage: 500 MG, BID
  9. ANTACIDS [Concomitant]
     Indication: DYSPEPSIA
     Dosage: UNK, OVER-THE-COUNTER
  10. ZOLOFT [Concomitant]
     Indication: ANXIETY
     Dosage: 50 MG, QD
  11. ZOLOFT [Concomitant]
     Indication: DEPRESSION
  12. TRAMADOL [Concomitant]
     Indication: PAIN
     Dosage: 50 MG, BID PRN
  13. SIMVASTATIN [Concomitant]
     Indication: PRODUCT USED FOR UNKNOWN INDICATION
     Dosage: 40 MG, QD
  14. VITAMIN D [Concomitant]
     Indication: PRODUCT USED FOR UNKNOWN INDICATION
     Dosage: 50000 U, BIW
  15. FISH OIL [Concomitant]
     Indication: PRODUCT USED FOR UNKNOWN INDICATION
     Dosage: 1 CAPS, QD

REACTIONS (6)
  - ASTHENIA [None]
  - DIZZINESS [None]
  - FATIGUE [None]
  - HYPOTENSION [None]
  - INCORRECT STORAGE OF DRUG [None]
  - SOMNOLENCE [None]
